FAERS Safety Report 15953953 (Version 1)
Quarter: 2019Q1

REPORT INFORMATION
  Report Type: Spontaneous
  Country: GB (occurrence: GB)
  Receive Date: 20190213
  Receipt Date: 20190213
  Transmission Date: 20190417
  Serious: Yes (Other)
  Sender: FDA-Public Use
  Company Number: GB-SUN PHARMACEUTICAL INDUSTRIES LTD-2019RR-198965

PATIENT
  Age: 30 Year
  Sex: Female
  Weight: 118.38 kg

DRUGS (1)
  1. DIHYDROCODEINE [Suspect]
     Active Substance: DIHYDROCODEINE
     Indication: TOOTH INFECTION
     Dosage: 30 MILLIGRAM
     Route: 048
     Dates: start: 20190114, end: 20190116

REACTIONS (2)
  - Pruritus [Recovered/Resolved]
  - Malaise [Recovered/Resolved]

NARRATIVE: CASE EVENT DATE: 20190114
